FAERS Safety Report 17167198 (Version 8)
Quarter: 2021Q3

REPORT INFORMATION
  Report Type: Spontaneous
  Country: JP (occurrence: JP)
  Receive Date: 20191218
  Receipt Date: 20210729
  Transmission Date: 20211014
  Serious: Yes (Life-Threatening, Hospitalization, Other)
  Sender: FDA-Public Use
  Company Number: JP-BRISTOL-MYERS SQUIBB COMPANY-BMS-2019-120428

PATIENT
  Age: 84 Year
  Sex: Male
  Weight: 51.9 kg

DRUGS (8)
  1. OPDIVO [Suspect]
     Active Substance: NIVOLUMAB
     Dosage: UNK
     Route: 065
     Dates: start: 20191115
  2. OPDIVO [Suspect]
     Active Substance: NIVOLUMAB
     Indication: NON-SMALL CELL LUNG CANCER RECURRENT
     Dosage: 240 MILLIGRAM
     Route: 041
     Dates: start: 20191101
  3. OPDIVO [Suspect]
     Active Substance: NIVOLUMAB
     Dosage: UNK
     Route: 065
     Dates: start: 20191129
  4. SYMPROIC [Concomitant]
     Active Substance: NALDEMEDINE
     Indication: CONSTIPATION
     Dosage: 1 DOSAGE FORM, QD
     Route: 048
     Dates: start: 20180904
  5. GOOFICE [Concomitant]
     Active Substance: ELOBIXIBAT
     Indication: CONSTIPATION
     Dosage: 1 DOSAGE FORM, QD
     Route: 048
     Dates: start: 20181025
  6. LYRICA [Concomitant]
     Active Substance: PREGABALIN
     Indication: NEURALGIA
     Dosage: 1 DOSAGE FORM, Q12H
     Route: 048
     Dates: start: 20180823
  7. MOHRUS [Concomitant]
     Active Substance: KETOPROFEN
     Indication: PAIN
     Dosage: AS NEEDED
     Route: 062
     Dates: start: 20181005
  8. TRAMCET [Concomitant]
     Active Substance: ACETAMINOPHEN\TRAMADOL
     Indication: NEURALGIA
     Dosage: 1 DOSAGE FORM, Q8H
     Route: 048
     Dates: start: 20180823

REACTIONS (4)
  - Cellulitis [Unknown]
  - Agranulocytosis [Unknown]
  - Sepsis [Recovered/Resolved]
  - Open globe injury [Recovered/Resolved with Sequelae]

NARRATIVE: CASE EVENT DATE: 20191207
